FAERS Safety Report 17440960 (Version 1)
Quarter: 2020Q1

REPORT INFORMATION
  Report Type: Report from Study
  Country: US (occurrence: US)
  Receive Date: 20200220
  Receipt Date: 20200220
  Transmission Date: 20200409
  Serious: Yes (Life-Threatening, Hospitalization, Other)
  Sender: FDA-Public Use
  Company Number: PHHY2018US160589

PATIENT
  Age: 62 Year
  Sex: Male
  Weight: 76.6 kg

DRUGS (1)
  1. KYMRIAH [Suspect]
     Active Substance: TISAGENLECLEUCEL
     Indication: DIFFUSE LARGE B-CELL LYMPHOMA
     Dosage: UNK, ONCE/SINGLE
     Route: 042
     Dates: start: 20180918, end: 20181217

REACTIONS (27)
  - Malignant neoplasm progression [Not Recovered/Not Resolved]
  - Anaemia [Recovered/Resolved]
  - Cough [Recovered/Resolved]
  - Aphasia [Unknown]
  - Hyponatraemia [Unknown]
  - Diffuse large B-cell lymphoma [Not Recovered/Not Resolved]
  - Dysarthria [Recovered/Resolved]
  - Urinary hesitation [Recovered/Resolved with Sequelae]
  - Pain [Unknown]
  - Neutrophil count decreased [Recovered/Resolved]
  - Diarrhoea [Unknown]
  - Pruritus [Unknown]
  - Vomiting [Recovered/Resolved]
  - Arthralgia [Recovered/Resolved]
  - Hypercalcaemia [Recovered/Resolved]
  - Acute kidney injury [Recovered/Resolved]
  - Fatigue [Unknown]
  - Anaemia [Recovered/Resolved with Sequelae]
  - Hyperuricaemia [Recovered/Resolved]
  - Fall [Recovered/Resolved]
  - Hypomagnesaemia [Unknown]
  - Tremor [Recovered/Resolved with Sequelae]
  - Neutrophil count decreased [Recovered/Resolved]
  - Constipation [Recovered/Resolved]
  - Rhinitis [Recovered/Resolved]
  - Lethargy [Recovered/Resolved]
  - Musculoskeletal pain [Not Recovered/Not Resolved]

NARRATIVE: CASE EVENT DATE: 20180921
